FAERS Safety Report 17664762 (Version 2)
Quarter: 2020Q2

REPORT INFORMATION
  Report Type: Spontaneous
  Country: US (occurrence: US)
  Receive Date: 20200414
  Receipt Date: 20200608
  Transmission Date: 20200713
  Serious: No
  Sender: FDA-Public Use
  Company Number: US-SA-2020SA008883

PATIENT

DRUGS (1)
  1. FABRAZYME [Suspect]
     Active Substance: AGALSIDASE BETA
     Indication: FABRY^S DISEASE
     Dosage: 50 MG, QOW
     Route: 041
     Dates: start: 20191105

REACTIONS (4)
  - Nasopharyngitis [Unknown]
  - Dyspnoea [Unknown]
  - Vomiting [Unknown]
  - Pruritus [Unknown]

NARRATIVE: CASE EVENT DATE: 20200522
